FAERS Safety Report 8808652 (Version 1)
Quarter: 2012Q4

REPORT INFORMATION
  Report Type: 
  Country: BR (occurrence: BR)
  Receive Date: 20120926
  Receipt Date: 20120926
  Transmission Date: 20130627
  Serious: Yes (Other)
  Sender: FDA-Public Use
  Company Number: PHHY2012BR082739

PATIENT
  Age: 69 Year
  Sex: Female

DRUGS (2)
  1. GALVUS [Suspect]
     Dosage: 50 mg, UNK
     Dates: start: 20111122
  2. DIOVAN HCT [Suspect]
     Dosage: 1 DF (160/12.5 mg), QD

REACTIONS (6)
  - Type 2 diabetes mellitus [Unknown]
  - Blood glucose increased [Unknown]
  - Glycosylated haemoglobin increased [Unknown]
  - Blood cholesterol increased [Unknown]
  - Low density lipoprotein increased [Unknown]
  - Blood triglycerides increased [Unknown]
